FAERS Safety Report 20290620 (Version 1)
Quarter: 2022Q1

REPORT INFORMATION
  Report Type: Spontaneous
  Country: FR (occurrence: FR)
  Receive Date: 20220104
  Receipt Date: 20220104
  Transmission Date: 20220423
  Serious: Yes (Other)
  Sender: FDA-Public Use
  Company Number: FR-AMERICAN REGENT INC-2021003374

PATIENT
  Age: 25 Year
  Sex: Female

DRUGS (1)
  1. VENOFER [Suspect]
     Active Substance: IRON SUCROSE
     Indication: Anaemia
     Dosage: 66 MILLIGRAM, 1 IN 1 TOTAL
     Route: 042
     Dates: start: 20211130, end: 20211130

REACTIONS (3)
  - Tachycardia foetal [Recovered/Resolved]
  - Maternal exposure during pregnancy [Unknown]
  - Tachycardia [Recovered/Resolved]

NARRATIVE: CASE EVENT DATE: 20211130
